FAERS Safety Report 5569058-0 (Version None)
Quarter: 2007Q4

REPORT INFORMATION
  Report Type: 
  Country: None (occurrence: None)
  Receive Date: 20071220
  Receipt Date: 20070611
  Transmission Date: 20080405
  Serious: No
  Sender: FDA-Public Use
  Company Number: A0655034A

PATIENT
  Age: 55 Year
  Sex: Male

DRUGS (15)
  1. AVODART [Suspect]
     Indication: BENIGN PROSTATIC HYPERPLASIA
     Dosage: .5MG PER DAY
     Route: 048
     Dates: start: 20070201, end: 20070606
  2. SPIRIVA [Concomitant]
  3. ALBUTEROL [Concomitant]
  4. ADVAIR DISKUS 100/50 [Concomitant]
  5. FLONASE [Concomitant]
  6. DIOVAN HCT [Concomitant]
  7. LIPITOR [Concomitant]
  8. CYCLOBENZAPRINE HCL [Concomitant]
  9. ALPRAZOLAM [Concomitant]
  10. SONATA [Concomitant]
  11. NABUMETONE [Concomitant]
  12. ASPIRIN [Concomitant]
  13. FLOMAX [Concomitant]
  14. FISH OILS [Concomitant]
  15. MULTI-VITAMIN [Concomitant]

REACTIONS (1)
  - LIP SWELLING [None]
